FAERS Safety Report 5593563-4 (Version None)
Quarter: 2008Q1

REPORT INFORMATION
  Report Type: 
  Country: None (occurrence: None)
  Receive Date: 20080116
  Receipt Date: 20080104
  Transmission Date: 20080703
  Serious: Yes (Hospitalization)
  Sender: FDA-Public Use
  Company Number: DE-ROCHE-539812

PATIENT
  Age: 77 Year
  Sex: Female
  Weight: 60 kg

DRUGS (12)
  1. BONIVA [Suspect]
     Indication: OSTEOPOROSIS POSTMENOPAUSAL
     Route: 048
     Dates: start: 20070601, end: 20070701
  2. DELIX PLUS [Concomitant]
     Route: 048
     Dates: start: 20060201, end: 20070707
  3. METOPROLOL SUCCINATE [Concomitant]
     Route: 048
     Dates: start: 20060201, end: 20070707
  4. PARACETAMOL-RATIOPHARM [Concomitant]
     Dosage: DOSAGE: 2-3 PER WEEK.
     Route: 048
     Dates: start: 20060201, end: 20070707
  5. VOLTAREN [Concomitant]
     Indication: PAIN
     Route: 061
     Dates: start: 20070101, end: 20070707
  6. RAMIPRIL [Concomitant]
     Dates: start: 20010201
  7. TRIAM [Concomitant]
     Dates: start: 20070522, end: 20070522
  8. TRIAM [Concomitant]
     Dates: start: 20070612, end: 20070612
  9. TRIAM [Concomitant]
     Dates: start: 20070629, end: 20070629
  10. FOSAMAX [Concomitant]
     Dates: start: 20021007, end: 20051201
  11. FOSAMAX [Concomitant]
     Dates: start: 20070201, end: 20070528
  12. CALCIUM GLUCONATE [Concomitant]
     Dosage: FORM: EFFERVESCENT TABLET.
     Dates: start: 20070401, end: 20070701

REACTIONS (1)
  - AUTOIMMUNE THROMBOCYTOPENIA [None]
